FAERS Safety Report 19189858 (Version 1)
Quarter: 2021Q2

REPORT INFORMATION
  Report Type: Report from Study
  Country: IT (occurrence: IT)
  Receive Date: 20210428
  Receipt Date: 20210428
  Transmission Date: 20210717
  Serious: No
  Sender: FDA-Public Use
  Company Number: IT-KARYOPHARM-2021KPT000151

PATIENT
  Age: 38 Year
  Sex: Male

DRUGS (2)
  1. SELINEXOR [Suspect]
     Active Substance: SELINEXOR
     Dosage: 60 MG, WEEKLY
     Route: 048
     Dates: start: 20191216, end: 20200206
  2. SELINEXOR [Suspect]
     Active Substance: SELINEXOR
     Indication: NEUROFIBROSARCOMA
     Dosage: 60 MG, 2X/WEEK
     Route: 048
     Dates: start: 20191011

REACTIONS (3)
  - Cognitive disorder [Unknown]
  - Nausea [Unknown]
  - Fatigue [Unknown]
